FAERS Safety Report 18945273 (Version 2)
Quarter: 2021Q1

REPORT INFORMATION
  Report Type: Spontaneous
  Country: US (occurrence: US)
  Receive Date: 20210226
  Receipt Date: 20210305
  Transmission Date: 20210420
  Serious: Yes (Other)
  Sender: FDA-Public Use
  Company Number: US-SUNOVION-2021SUN000527

PATIENT
  Age: 60 Year
  Sex: Female

DRUGS (1)
  1. APTIOM [Suspect]
     Active Substance: ESLICARBAZEPINE ACETATE
     Indication: PRODUCT USED FOR UNKNOWN INDICATION
     Dosage: 400 MG
     Route: 048

REACTIONS (11)
  - Loss of consciousness [Unknown]
  - Multiple sclerosis [Unknown]
  - Seizure [Unknown]
  - Hallucination, visual [Unknown]
  - Musculoskeletal stiffness [Unknown]
  - Headache [Unknown]
  - Therapy cessation [Unknown]
  - Abdominal discomfort [Unknown]
  - Nervous system disorder [Unknown]
  - Visual impairment [Unknown]
  - Confusional state [Unknown]
